FAERS Safety Report 5434283-6 (Version None)
Quarter: 2007Q3

REPORT INFORMATION
  Report Type: 
  Country: None (occurrence: None)
  Receive Date: 20070828
  Receipt Date: 20070828
  Transmission Date: 20080115
  Serious: No
  Sender: FDA-Public Use
  Company Number: None

PATIENT
  Sex: Female

DRUGS (2)
  1. SERTRALINE [Suspect]
     Indication: MIGRAINE
     Dosage: 100MG DAILY BY MOUTH DAILY
     Route: 048
     Dates: start: 20060301, end: 20070401
  2. IMITREX [Concomitant]

REACTIONS (3)
  - DRUG EFFECT DECREASED [None]
  - HEADACHE [None]
  - THERAPEUTIC RESPONSE UNEXPECTED WITH DRUG SUBSTITUTION [None]
